FAERS Safety Report 9157689 (Version 1)
Quarter: 2013Q1

REPORT INFORMATION
  Report Type: Spontaneous
  Country: US (occurrence: US)
  Receive Date: 20130312
  Receipt Date: 20130312
  Transmission Date: 20140127
  Serious: Yes (Other)
  Sender: FDA-Public Use
  Company Number: US-PFIZER INC-2012051437

PATIENT
  Age: 59 Year
  Sex: Female
  Weight: 49 kg

DRUGS (7)
  1. LYRICA [Suspect]
     Indication: NEURALGIA
     Dosage: 150 MG, 2X/DAY
     Route: 048
  2. LYRICA [Suspect]
     Indication: CONGENITAL NEUROPATHY
  3. CELEXA [Concomitant]
     Indication: EMOTIONAL DISORDER
     Dosage: 40 MG, 1X/DAY
     Route: 048
  4. CELEXA [Concomitant]
     Dosage: 5 MG, UNK
  5. VICODIN [Concomitant]
     Dosage: 7.5 MG, 4X/DAY
  6. CARISOPRODOL [Concomitant]
     Dosage: 350 MG, 2X/DAY (60 OF 350MG TAKE 1 TABLET BY MOUTH AT BEDTIME)
     Route: 048
     Dates: start: 20111101
  7. ELAVIL [Concomitant]
     Dosage: 25 MG, 1X/DAY (30 OF 25 ONCE A DAY AT BEDTIME)
     Route: 048
     Dates: start: 20110816

REACTIONS (2)
  - Pulmonary mass [Unknown]
  - Nasopharyngitis [Recovering/Resolving]
